FAERS Safety Report 8076890-0 (Version None)
Quarter: 2012Q1

REPORT INFORMATION
  Report Type: 
  Country: None (occurrence: None)
  Receive Date: 20120127
  Receipt Date: 20120112
  Transmission Date: 20120608
  Serious: Yes (Hospitalization)
  Sender: FDA-Public Use
  Company Number: PHEH2012US002325

PATIENT
  Age: 34 Year
  Sex: Male
  Weight: 79.365 kg

DRUGS (3)
  1. TOBI [Suspect]
     Dosage: 300 MG, BID 28 DAYS ON AND 28 DAYS OFF
     Dates: start: 20111214
  2. LEVAQUIN [Concomitant]
  3. ZYVOX [Concomitant]

REACTIONS (1)
  - UPPER RESPIRATORY TRACT INFECTION [None]
